FAERS Safety Report 11614430 (Version 1)
Quarter: 2015Q4

REPORT INFORMATION
  Report Type: Spontaneous
  Country: IT (occurrence: IT)
  Receive Date: 20151009
  Receipt Date: 20151009
  Transmission Date: 20160304
  Serious: Yes (Disabling)
  Sender: FDA-Public Use
  Company Number: IT-HOSPIRA-3029614

PATIENT
  Age: 71 Year
  Sex: Male

DRUGS (1)
  1. ZOLEDRONIC ACID [Suspect]
     Active Substance: ZOLEDRONIC ACID
     Indication: PROSTATE CANCER METASTATIC
     Dosage: MONTHLY
     Route: 042
     Dates: start: 20150801, end: 20150801

REACTIONS (2)
  - Oral mucosa erosion [Unknown]
  - Osteonecrosis of jaw [Unknown]

NARRATIVE: CASE EVENT DATE: 20150928
